FAERS Safety Report 13191801 (Version 2)
Quarter: 2017Q1

REPORT INFORMATION
  Report Type: Spontaneous
  Country: US (occurrence: US)
  Receive Date: 20170207
  Receipt Date: 20170209
  Transmission Date: 20170428
  Serious: Yes (Life-Threatening, Hospitalization, Disabling)
  Sender: FDA-Public Use
  Company Number: US-ROCHE-1888868

PATIENT
  Age: 57 Year
  Sex: Female
  Weight: 111 kg

DRUGS (1)
  1. ACTIVASE [Suspect]
     Active Substance: ALTEPLASE
     Indication: CEREBROVASCULAR ACCIDENT
     Route: 040
     Dates: start: 20170128, end: 20170128

REACTIONS (10)
  - Hypotension [Unknown]
  - Aphasia [Unknown]
  - Intracranial mass [Unknown]
  - Cerebral ischaemia [Unknown]
  - Pain in extremity [Recovered/Resolved]
  - Chest pain [Recovered/Resolved]
  - Cerebrovascular accident [Not Recovered/Not Resolved]
  - Depressed level of consciousness [Unknown]
  - Hemiparesis [Unknown]
  - Back pain [Recovered/Resolved]

NARRATIVE: CASE EVENT DATE: 20170128
